FAERS Safety Report 10699802 (Version 1)
Quarter: 2015Q1

REPORT INFORMATION
  Report Type: Spontaneous
  Country: US (occurrence: None)
  Receive Date: 20150108
  Receipt Date: 20150108
  Transmission Date: 20150721
  Serious: Yes (Hospitalization)
  Sender: FDA-Public Use
  Company Number: None

PATIENT
  Age: 67 Year
  Sex: Female
  Weight: 49.1 kg

DRUGS (14)
  1. VITAMIN D3 [Concomitant]
     Active Substance: CHOLECALCIFEROL
  2. CIPROFLOXACIN. [Concomitant]
     Active Substance: CIPROFLOXACIN
  3. VITAMIN B-1 [Concomitant]
  4. HYDROCORTISONE CREAM [Concomitant]
     Active Substance: HYDROCORTISONE
  5. METOPROLOL TARTRATE. [Concomitant]
     Active Substance: METOPROLOL TARTRATE
  6. HYDROXYZINE [Concomitant]
     Active Substance: HYDROXYZINE\HYDROXYZINE HYDROCHLORIDE
  7. PREVACID SOLUTAB [Concomitant]
     Active Substance: LANSOPRAZOLE
  8. MIDODRINE HCL [Concomitant]
     Active Substance: MIDODRINE HYDROCHLORIDE
  9. ENSURE [Concomitant]
     Active Substance: AMINO ACIDS\DEXTROSE\ELECTROLYTES NOS\SOYBEAN OIL\VITAMINS
  10. OMEPRAZOLE. [Concomitant]
     Active Substance: OMEPRAZOLE
  11. SIMEPREVIR 150MG JANSSEN [Suspect]
     Active Substance: SIMEPREVIR
     Indication: HEPATITIS C
     Route: 048
     Dates: start: 20140307, end: 20140530
  12. TYLENOL [Concomitant]
     Active Substance: ACETAMINOPHEN
  13. FOLIC ACID. [Concomitant]
     Active Substance: FOLIC ACID
  14. SOFOSBUVIR 400MG GILEAD [Suspect]
     Active Substance: SOFOSBUVIR
     Indication: HEPATITIS C
     Route: 048
     Dates: start: 20140307, end: 20140530

REACTIONS (4)
  - Blood pressure decreased [None]
  - Internal haemorrhage [None]
  - Abdominal pain lower [None]
  - Anaemia [None]

NARRATIVE: CASE EVENT DATE: 20140519
